FAERS Safety Report 8195495-4 (Version None)
Quarter: 2012Q1

REPORT INFORMATION
  Report Type: 
  Country: None (occurrence: None)
  Receive Date: 20120308
  Receipt Date: 20120305
  Transmission Date: 20120608
  Serious: Yes (Other)
  Sender: FDA-Public Use
  Company Number: PHEH2012US003531

PATIENT
  Sex: Female

DRUGS (4)
  1. VITAMIN [Concomitant]
     Dosage: UNK
  2. ZONISAMIDE [Concomitant]
  3. LAMOTRIGINE [Concomitant]
     Dosage: UNK
  4. AFINITOR [Suspect]
     Indication: ASTROCYTOMA, LOW GRADE
     Dosage: 2.5 MG, DAILY
     Route: 048
     Dates: start: 20120121

REACTIONS (3)
  - COGNITIVE DISORDER [None]
  - CONVULSION [None]
  - ORAL PAIN [None]
